FAERS Safety Report 6417605-9 (Version None)
Quarter: 2009Q4

REPORT INFORMATION
  Report Type: 
  Country: None (occurrence: None)
  Receive Date: 20091028
  Receipt Date: 20091022
  Transmission Date: 20100525
  Serious: Yes (Other)
  Sender: FDA-Public Use
  Company Number: CA-ROCHE-664169

PATIENT
  Sex: Female

DRUGS (1)
  1. TAMIFLU [Suspect]
     Dosage: DOSE: 1 X BID, FOR 5 DAYS
     Route: 048
     Dates: start: 20091006, end: 20091001

REACTIONS (1)
  - ABORTION SPONTANEOUS [None]
